FAERS Safety Report 5500884-X (Version None)
Quarter: 2007Q4

REPORT INFORMATION
  Report Type: 
  Country: None (occurrence: None)
  Receive Date: 20071029
  Receipt Date: 20071017
  Transmission Date: 20080405
  Serious: Yes (Death, Hospitalization, Disabling)
  Sender: FDA-Public Use
  Company Number: US-ROCHE-447441

PATIENT
  Age: 67 Year
  Sex: Male
  Weight: 77.9 kg

DRUGS (21)
  1. MYCOPHENOLATE MOFETIL [Suspect]
     Route: 048
     Dates: start: 20051213
  2. PREDNISONE [Suspect]
     Route: 048
     Dates: start: 20051230
  3. TACROLIMUS [Suspect]
     Dosage: THERAPY REPORTED AS 4MG AT 9 AM AND 5 MG AT 9 PM.
     Route: 048
     Dates: start: 20060208
  4. INSULIN [Concomitant]
     Dosage: TDD REPORTED AS ^VARIABLE^.
  5. CALCIUM CARBONATE [Concomitant]
  6. ALLOPURINOL [Concomitant]
     Dates: start: 20060223
  7. ZOCOR [Concomitant]
  8. HYDROCHLOROTHIAZIDE [Concomitant]
     Dates: start: 20051128
  9. ROCALTROL [Concomitant]
     Dates: start: 20050417
  10. HEPARIN [Concomitant]
     Dates: start: 20060417
  11. FELODIPINE [Concomitant]
     Dates: start: 20051101
  12. LOPRESSOR [Concomitant]
  13. METOPROLOL [Concomitant]
  14. LANTUS [Concomitant]
  15. CLONIDINE [Concomitant]
  16. ZOSYN [Concomitant]
  17. HYDRALAZINE HCL [Concomitant]
  18. MG OXIDE [Concomitant]
  19. REGLAN [Concomitant]
  20. ASPIRIN [Concomitant]
  21. 1 CONCOMITANT DRUG [Concomitant]
     Dosage: THERAPY AS NEEDED. DRUG: DARUVEET.

REACTIONS (1)
  - MULTIPLE MYELOMA [None]
